FAERS Safety Report 5372346-4 (Version None)
Quarter: 2007Q2

REPORT INFORMATION
  Report Type: 
  Country: None (occurrence: None)
  Receive Date: 20070627
  Receipt Date: 20070619
  Transmission Date: 20071010
  Serious: Yes (Death, Hospitalization)
  Sender: FDA-Public Use
  Company Number: US-ELI_LILLY_AND_COMPANY-US200704005550

PATIENT
  Age: 80 Year
  Sex: Female
  Weight: 59.909 kg

DRUGS (17)
  1. LEVOTHYROXINE SODIUM [Concomitant]
     Indication: HYPOTHYROIDISM
     Dosage: 125 UG, DAILY (1/D)
     Route: 048
     Dates: start: 20060301, end: 20070512
  2. EFFEXOR [Concomitant]
     Indication: DEPRESSION
     Dosage: 150 MG, DAILY (1/D)
     Route: 048
     Dates: start: 20070507, end: 20070512
  3. NORCO [Concomitant]
     Indication: PAIN
     Dosage: 10 MG, AS NEEDED
     Route: 048
     Dates: start: 20061201
  4. MULTI-VITAMIN [Concomitant]
     Dosage: 1 UNK, DAILY (1/D)
     Route: 048
  5. GLIMEPIRIDE [Concomitant]
     Dosage: 2 MG, DAILY (1/D)
     Route: 048
  6. DIOVAN [Concomitant]
     Dosage: 320 MG, DAILY (1/D)
     Route: 048
  7. TOPROL-XL [Concomitant]
     Indication: HYPERTENSION
     Dosage: 50 MG, 2/D
     Route: 048
     Dates: start: 20060301, end: 20070512
  8. CALCIUM CITRATE [Concomitant]
     Dosage: 1 UNK, DAILY (1/D)
     Route: 048
  9. ACIPHEX [Concomitant]
     Dosage: 20 MG, 2/D
     Route: 048
  10. OXYCODONE HCL [Concomitant]
     Indication: PAIN
     Dosage: 10 MG, AS NEEDED
     Route: 048
     Dates: end: 20070512
  11. AMYLASE/LIPASE/PROTEASE [Concomitant]
     Dosage: 5 UNK, 3/D
     Route: 048
  12. PANCREASE [Concomitant]
     Indication: DIARRHOEA
     Dosage: 4 UNK, OTHER
     Dates: start: 20070223, end: 20070512
  13. PROCRIT [Concomitant]
     Indication: ANAEMIA
  14. LANSOPRAZOLE [Concomitant]
     Indication: GASTROOESOPHAGEAL REFLUX DISEASE
     Dates: start: 20070430, end: 20070512
  15. ENZASTAURIN (LY317615) [Suspect]
     Indication: PANCREATIC CARCINOMA
     Dosage: 1200 MG, DAILY (1/D)
     Route: 048
     Dates: start: 20061229, end: 20061229
  16. ENZASTAURIN (LY317615) [Suspect]
     Dosage: 500 MG, DAILY (1/D)
     Route: 048
     Dates: start: 20061230, end: 20070506
  17. GEMCITABINE HCL [Suspect]
     Indication: PANCREATIC CARCINOMA
     Dosage: 1000 MG/M2, OTHER
     Route: 042
     Dates: start: 20061229, end: 20070426

REACTIONS (2)
  - GASTROINTESTINAL HAEMORRHAGE [None]
  - INTESTINAL PERFORATION [None]
